FAERS Safety Report 25678896 (Version 1)
Quarter: 2025Q3

REPORT INFORMATION
  Report Type: Spontaneous
  Country: US (occurrence: US)
  Receive Date: 20250814
  Receipt Date: 20250814
  Transmission Date: 20251021
  Serious: No
  Sender: EMD SERONO INC
  Company Number: US-Merck Healthcare KGaA-2025041310

PATIENT
  Sex: Female

DRUGS (4)
  1. MAVENCLAD [Suspect]
     Active Substance: CLADRIBINE
     Indication: Multiple sclerosis
     Dates: start: 20240108, end: 20240112
  2. MAVENCLAD [Suspect]
     Active Substance: CLADRIBINE
  3. MAVENCLAD [Suspect]
     Active Substance: CLADRIBINE
     Dates: start: 20250206, end: 20250210
  4. MAVENCLAD [Suspect]
     Active Substance: CLADRIBINE

REACTIONS (7)
  - White blood cell count decreased [Unknown]
  - Gait disturbance [Unknown]
  - Temperature intolerance [Unknown]
  - Pain in extremity [Unknown]
  - Fatigue [Unknown]
  - Influenza [Unknown]
  - Urinary tract infection [Unknown]
